FAERS Safety Report 12873079 (Version 8)
Quarter: 2017Q4

REPORT INFORMATION
  Report Type: Spontaneous
  Country: US (occurrence: US)
  Receive Date: 20161021
  Receipt Date: 20171012
  Transmission Date: 20180320
  Serious: Yes (Hospitalization, Other)
  Sender: FDA-Public Use
  Company Number: US-CIPLA LTD.-2016US19901

PATIENT

DRUGS (20)
  1. CHOLECALCIFEROL [Concomitant]
     Active Substance: CHOLECALCIFEROL
     Dosage: 400 IU, QD
     Route: 065
  2. WARFARIN [Interacting]
     Active Substance: WARFARIN
     Dosage: 3 MG, QD, DAY 4, (21 MG WEEKLY)
     Route: 048
  3. WARFARIN [Interacting]
     Active Substance: WARFARIN
     Dosage: UNK, DAY 70, INSTRUCTED TO HOLD WARFARIN 2 DAYS
     Route: 048
  4. WARFARIN [Interacting]
     Active Substance: WARFARIN
     Dosage: 4 MG, QD, DAY 30, (28 MG WEEKLY)
     Route: 048
  5. CALCIUM CARBONATE. [Concomitant]
     Active Substance: CALCIUM CARBONATE
     Dosage: 650 MG, QD
     Route: 065
  6. WARFARIN [Interacting]
     Active Substance: WARFARIN
     Dosage: 4 MG, QD, DAY 35, (28 MG WEEKLY)
     Route: 048
  7. WARFARIN [Interacting]
     Active Substance: WARFARIN
     Dosage: 4 MG, QD, DAY 49, (28 MG WEEKLY)
     Route: 048
  8. TROSPIUM [Concomitant]
     Active Substance: TROSPIUM
     Dosage: 20 MG, BID
     Route: 065
  9. GEMCITABINE [Interacting]
     Active Substance: GEMCITABINE\GEMCITABINE HYDROCHLORIDE
     Indication: BLADDER TRANSITIONAL CELL CARCINOMA
     Dosage: 2 G, ( ONE DOSE PER WEEK FOR SIX WEEKS)
     Route: 043
  10. WARFARIN [Suspect]
     Active Substance: WARFARIN
     Indication: DEEP VEIN THROMBOSIS
     Dosage: 2 MG, QD, DAY 1 (WARFARIN INITIATED), (14 MG WEEKLY)
     Route: 048
  11. WARFARIN [Interacting]
     Active Substance: WARFARIN
     Dosage: UNK, DAY 21, 2-MG BOOST X 2 DAYS, THEN 25 MG WEEKLY
     Route: 048
  12. WARFARIN [Interacting]
     Active Substance: WARFARIN
     Dosage: UNK, DAY 27, 1-MG BOOST X 1 DAY, THEN 4 MG DAILY (28 MG WEEKLY)
     Route: 048
  13. WARFARIN [Interacting]
     Active Substance: WARFARIN
     Dosage: UNK, DAY 42, (28 MG WEEKLY)
     Route: 048
  14. WARFARIN [Interacting]
     Active Substance: WARFARIN
     Dosage: 4 MG, QD, DAY 63, WARFARIN WITHHELD FOR 3 DAYS, THEN (28 MG WEEKLY)
     Route: 048
  15. WARFARIN [Interacting]
     Active Substance: WARFARIN
     Dosage: 4 MG, QD, DAY 7, (28 MG WEEKLY)
     Route: 048
  16. WARFARIN [Interacting]
     Active Substance: WARFARIN
     Dosage: 3 MG, QD, DAY 16, (25 MG WEEKLY)
     Route: 048
  17. WARFARIN [Interacting]
     Active Substance: WARFARIN
     Dosage: 4 MG, QD, DAY 56, (28 MG WEEKLY)
     Route: 048
  18. CARBOPLATIN. [Suspect]
     Active Substance: CARBOPLATIN
     Indication: BLADDER TRANSITIONAL CELL CARCINOMA
     Dosage: UNK
  19. BCG VACCINE SII [Suspect]
     Active Substance: BCG VACCINE
     Indication: BLADDER CANCER
     Route: 065
  20. TAMSULOSIN [Concomitant]
     Active Substance: TAMSULOSIN
     Dosage: 0.4 MG, QD
     Route: 048

REACTIONS (7)
  - Disease progression [Unknown]
  - Drug interaction [Unknown]
  - International normalised ratio increased [Recovered/Resolved]
  - Refractory cancer [Unknown]
  - Urinary tract infection [Unknown]
  - Hydronephrosis [Unknown]
  - Haematoma [Recovered/Resolved]
